FAERS Safety Report 5639336-5 (Version None)
Quarter: 2008Q1

REPORT INFORMATION
  Report Type: 
  Country: None (occurrence: None)
  Receive Date: 20080226
  Receipt Date: 20080215
  Transmission Date: 20080703
  Serious: Yes (Hospitalization, Disabling, Other)
  Sender: FDA-Public Use
  Company Number: US-PFIZER INC-2008008323

PATIENT
  Sex: Female
  Weight: 92.5 kg

DRUGS (6)
  1. LIPITOR [Suspect]
     Dosage: DAILY DOSE:40MG-FREQ:EVERY DAY AT BEDTIME
  2. AMLODIPINE BESYLATE/VALSARTAN [Suspect]
     Indication: HYPERTENSION
     Dosage: TEXT:5/160-FREQ:DAILY
     Route: 048
     Dates: start: 20071108, end: 20080115
  3. VITAMINS WITH MINERALS [Concomitant]
  4. POTASSIUM CHLORIDE [Concomitant]
  5. LANTUS [Concomitant]
  6. NOVOLOG [Concomitant]

REACTIONS (6)
  - ALDOLASE INCREASED [None]
  - C-REACTIVE PROTEIN INCREASED [None]
  - CATARACT OPERATION [None]
  - MUSCULAR WEAKNESS [None]
  - RED BLOOD CELL SEDIMENTATION RATE INCREASED [None]
  - RHABDOMYOLYSIS [None]
